FAERS Safety Report 9747697 (Version 1)
Quarter: 2013Q4

REPORT INFORMATION
  Report Type: Spontaneous
  Country: US (occurrence: None)
  Receive Date: 20131206
  Receipt Date: 20131206
  Transmission Date: 20140711
  Serious: Yes (Hospitalization)
  Sender: FDA-Public Use
  Company Number: SYM-2013-13656

PATIENT
  Sex: Male

DRUGS (1)
  1. XENAZINE [Suspect]
     Indication: CHOREA
     Dosage: 12.5 MG TABLET 2 TABLET MORNING, 1 TABLET AFTERNOON, 2 TABLET EVENING, ORAL
     Route: 048
     Dates: start: 20121211

REACTIONS (1)
  - Hospitalisation [None]
